FAERS Safety Report 21899586 (Version 2)
Quarter: 2023Q1

REPORT INFORMATION
  Report Type: Spontaneous
  Country: US (occurrence: US)
  Receive Date: 20230123
  Receipt Date: 20230202
  Transmission Date: 20230418
  Serious: Yes (Death, Hospitalization, Other)
  Sender: FDA-Public Use
  Company Number: US-DSJP-DSU-2023-102364

PATIENT
  Age: 57 Year
  Sex: Female
  Weight: 61.688 kg

DRUGS (1)
  1. TURALIO [Suspect]
     Active Substance: PEXIDARTINIB HYDROCHLORIDE
     Indication: Giant cell tumour of tendon sheath
     Dosage: 400 MG, BID
     Route: 065
     Dates: start: 202208, end: 202301

REACTIONS (11)
  - Chest pain [Fatal]
  - Muscular weakness [Fatal]
  - Diarrhoea [Fatal]
  - Metastases to central nervous system [Fatal]
  - Metastases to lung [Fatal]
  - Anaemia [Fatal]
  - Mediastinal mass [Fatal]
  - Splenic rupture [Fatal]
  - Asthenia [Unknown]
  - Lethargy [Unknown]
  - Haemorrhagic ascites [Unknown]

NARRATIVE: CASE EVENT DATE: 20230109
